FAERS Safety Report 11657851 (Version 3)
Quarter: 2015Q4

REPORT INFORMATION
  Report Type: Report from Study
  Country: KR (occurrence: KR)
  Receive Date: 20151023
  Receipt Date: 20151230
  Transmission Date: 20160304
  Serious: Yes (Death)
  Sender: FDA-Public Use
  Company Number: KR-B.I. PHARMACEUTICALS,INC./RIDGEFIELD-2015-BI-57824RK

PATIENT
  Age: 74 Year
  Sex: Male
  Weight: 69.8 kg

DRUGS (14)
  1. GILOTRIF [Suspect]
     Active Substance: AFATINIB
     Dosage: 30 MG
     Route: 048
     Dates: start: 20151003, end: 20151014
  2. PANTOLOC [Concomitant]
     Active Substance: PANTOPRAZOLE SODIUM
     Indication: NAUSEA
     Dosage: 20 MG
     Route: 065
     Dates: start: 20150908
  3. LEVOTUSS [Concomitant]
     Active Substance: LEVODROPROPIZINE
     Dosage: 180 MG
     Route: 048
     Dates: start: 20150928, end: 20151014
  4. LIPITOR [Concomitant]
     Active Substance: ATORVASTATIN CALCIUM
     Indication: ANGINA PECTORIS
     Dosage: 10 MG
     Route: 065
     Dates: start: 20150904
  5. VASTINAN [Concomitant]
     Dosage: 35 MG
     Route: 048
     Dates: start: 20150904, end: 20151014
  6. LEVOTUSS [Concomitant]
     Active Substance: LEVODROPROPIZINE
     Indication: COUGH
     Dosage: 180 MG
     Route: 065
     Dates: start: 20150928
  7. ASPIRIN. [Concomitant]
     Active Substance: ASPIRIN
     Indication: ANGINA PECTORIS
     Dosage: 100 MG
     Route: 065
     Dates: start: 20151003
  8. GILOTRIF [Suspect]
     Active Substance: AFATINIB
     Indication: NON-SMALL CELL LUNG CANCER
     Dosage: 40 MG
     Route: 048
     Dates: start: 20150915, end: 20150930
  9. ESROBAN [Concomitant]
     Indication: RASH
     Route: 065
     Dates: start: 20151005
  10. VASTINAN [Concomitant]
     Indication: ANGINA PECTORIS
     Dosage: 35 MG
     Route: 065
     Dates: start: 20150904
  11. ASPIRIN. [Concomitant]
     Active Substance: ASPIRIN
     Dosage: 100 MG
     Route: 048
     Dates: start: 20151003, end: 20151014
  12. LIPITOR [Concomitant]
     Active Substance: ATORVASTATIN CALCIUM
     Indication: HYPERTENSION
     Dosage: 10 MG
     Route: 048
     Dates: start: 20150904, end: 20151014
  13. PANTOLOC [Concomitant]
     Active Substance: PANTOPRAZOLE SODIUM
     Dosage: 20 MG
     Route: 048
     Dates: start: 20150908, end: 20151014
  14. ADVANTAN [Concomitant]
     Active Substance: CORTICOSTEROID NOS
     Indication: RASH
     Route: 065
     Dates: start: 20151005

REACTIONS (2)
  - Pyrexia [Recovered/Resolved]
  - Atypical pneumonia [Fatal]

NARRATIVE: CASE EVENT DATE: 20151002
